FAERS Safety Report 14029696 (Version 11)
Quarter: 2022Q2

REPORT INFORMATION
  Report Type: Spontaneous
  Country: US (occurrence: US)
  Receive Date: 20171002
  Receipt Date: 20220419
  Transmission Date: 20220720
  Serious: No
  Sender: FDA-Public Use
  Company Number: US-JAZZ-2017-US-009024

PATIENT
  Sex: Male

DRUGS (22)
  1. XYREM [Suspect]
     Active Substance: SODIUM OXYBATE
     Indication: Narcolepsy
     Dosage: 2.25G, BID
     Route: 048
     Dates: start: 20170630, end: 20170713
  2. XYREM [Suspect]
     Active Substance: SODIUM OXYBATE
     Indication: Cataplexy
     Dosage: 3G, BID
     Route: 048
     Dates: start: 20170714
  3. XYREM [Suspect]
     Active Substance: SODIUM OXYBATE
     Dosage: 2.25 GRAM, BID
     Route: 048
     Dates: start: 2017, end: 2017
  4. XYREM [Suspect]
     Active Substance: SODIUM OXYBATE
     Dosage: 3.75 G, FIRST DOSE
     Route: 048
     Dates: start: 2017, end: 2017
  5. XYREM [Suspect]
     Active Substance: SODIUM OXYBATE
     Dosage: 2.25 G, SECOND DOSE
     Route: 048
     Dates: start: 2017, end: 2017
  6. XYREM [Suspect]
     Active Substance: SODIUM OXYBATE
     Dosage: 3G, FIRST DOSE
     Route: 048
     Dates: start: 20170831, end: 2017
  7. XYREM [Suspect]
     Active Substance: SODIUM OXYBATE
     Dosage: 3 G, SECOND DOSE
     Route: 048
     Dates: start: 20170831, end: 2017
  8. XYREM [Suspect]
     Active Substance: SODIUM OXYBATE
     Dosage: 3.75 G, FIRST DOSE
     Route: 048
     Dates: start: 2017
  9. XYREM [Suspect]
     Active Substance: SODIUM OXYBATE
     Dosage: 3 G, SECOND DOSE
     Route: 048
     Dates: start: 2017
  10. XYREM [Suspect]
     Active Substance: SODIUM OXYBATE
     Dosage: 3.5 G, QD
     Route: 048
  11. XYREM [Suspect]
     Active Substance: SODIUM OXYBATE
     Dosage: 3.5 G, BID
     Route: 048
  12. XYREM [Suspect]
     Active Substance: SODIUM OXYBATE
     Dosage: UNKNOWN DOSE
     Route: 048
     Dates: start: 202005
  13. LEXAPRO [Concomitant]
     Active Substance: ESCITALOPRAM OXALATE
  14. MODAFINIL [Concomitant]
     Active Substance: MODAFINIL
     Dosage: 100 MG
     Dates: start: 20170620
  15. CLONAZEPAM [Concomitant]
     Active Substance: CLONAZEPAM
  16. KLONOPIN [Concomitant]
     Active Substance: CLONAZEPAM
     Dosage: 1 MG
     Dates: start: 20140101
  17. DEPLIN [Concomitant]
     Active Substance: LEVOMEFOLATE CALCIUM
     Dosage: 15 MG
     Dates: start: 20170601
  18. MUCINEX D [Concomitant]
     Active Substance: GUAIFENESIN\PSEUDOEPHEDRINE HYDROCHLORIDE
     Dosage: UNK
     Dates: start: 20180823
  19. ABILIFY [Concomitant]
     Active Substance: ARIPIPRAZOLE
     Dosage: 5 MG
     Dates: start: 20191106
  20. ABILIFY [Concomitant]
     Active Substance: ARIPIPRAZOLE
     Dosage: 5 MG
     Dates: start: 20211223
  21. PROZAC [Concomitant]
     Active Substance: FLUOXETINE HYDROCHLORIDE
     Dosage: 40 MG PULVULE
     Dates: start: 20200108
  22. LATUDA [Concomitant]
     Active Substance: LURASIDONE HYDROCHLORIDE
     Dosage: 40 MG TABLET
     Dates: start: 20211224

REACTIONS (29)
  - Stress [Not Recovered/Not Resolved]
  - Muscle twitching [Not Recovered/Not Resolved]
  - Nasal congestion [Unknown]
  - Limb discomfort [Unknown]
  - Illness [Unknown]
  - Restlessness [Not Recovered/Not Resolved]
  - Chest discomfort [Unknown]
  - Dysgeusia [Not Recovered/Not Resolved]
  - Hunger [Not Recovered/Not Resolved]
  - Hiatus hernia [Unknown]
  - Gastritis [Unknown]
  - Obsessive-compulsive disorder [Not Recovered/Not Resolved]
  - Myalgia [Recovering/Resolving]
  - Feeling drunk [Unknown]
  - Nausea [Not Recovered/Not Resolved]
  - Poor quality sleep [Not Recovered/Not Resolved]
  - Insomnia [Not Recovered/Not Resolved]
  - Headache [Not Recovered/Not Resolved]
  - Fatigue [Not Recovered/Not Resolved]
  - Vomiting [Recovered/Resolved]
  - Somnolence [Not Recovered/Not Resolved]
  - Dizziness [Unknown]
  - Diarrhoea [Unknown]
  - Anxiety [Recovered/Resolved]
  - Drug ineffective [Recovering/Resolving]
  - Decreased appetite [Unknown]
  - Pre-existing condition improved [Unknown]
  - Mania [Unknown]
  - Product dose omission issue [Unknown]

NARRATIVE: CASE EVENT DATE: 20170101
